FAERS Safety Report 6310288-8 (Version None)
Quarter: 2009Q3

REPORT INFORMATION
  Report Type: 
  Country: None (occurrence: None)
  Receive Date: 20090814
  Receipt Date: 20090805
  Transmission Date: 20100115
  Serious: Yes (Hospitalization)
  Sender: FDA-Public Use
  Company Number: PHEH2009US08905

PATIENT

DRUGS (1)
  1. TRILEPTAL [Suspect]
     Dosage: UNK

REACTIONS (1)
  - MENTAL DISORDER [None]
